FAERS Safety Report 4490116-6 (Version None)
Quarter: 2004Q4

REPORT INFORMATION
  Report Type: 
  Country: None (occurrence: None)
  Receive Date: 20041028
  Receipt Date: 20041021
  Transmission Date: 20050328
  Serious: Yes (Hospitalization)
  Sender: FDA-Public Use
  Company Number: 2004240732US

PATIENT
  Sex: Female

DRUGS (1)
  1. CELEBREX [Suspect]

REACTIONS (6)
  - CARDIAC DISORDER [None]
  - FALL [None]
  - HEADACHE [None]
  - NECK INJURY [None]
  - NERVOUSNESS [None]
  - PALPITATIONS [None]
